FAERS Safety Report 13276409 (Version 4)
Quarter: 2017Q2

REPORT INFORMATION
  Report Type: Report from Study
  Country: CA (occurrence: CA)
  Receive Date: 20170228
  Receipt Date: 20170417
  Transmission Date: 20170830
  Serious: Yes (Other)
  Sender: FDA-Public Use
  Company Number: PHHY2015CA076028

PATIENT
  Age: 65 Year
  Sex: Female

DRUGS (18)
  1. XOLAIR [Suspect]
     Active Substance: OMALIZUMAB
     Indication: ASTHMA
     Dosage: 150 MG, BIW
     Route: 058
     Dates: start: 20090609
  2. XOLAIR [Suspect]
     Active Substance: OMALIZUMAB
     Dosage: UNK
     Route: 058
     Dates: start: 20170224
  3. PREDNISONE. [Suspect]
     Active Substance: PREDNISONE
     Indication: BLOOD IMMUNOGLOBULIN E INCREASED
     Dosage: 20 MG, QD
     Route: 065
  4. ARTHROTEC [Concomitant]
     Active Substance: DICLOFENAC SODIUM\MISOPROSTOL
     Indication: PRODUCT USED FOR UNKNOWN INDICATION
     Route: 065
  5. CORTISONE [Concomitant]
     Active Substance: CORTISONE\HYDROCORTISONE
     Indication: PRODUCT USED FOR UNKNOWN INDICATION
     Route: 065
  6. OMNARIS [Concomitant]
     Active Substance: CICLESONIDE
     Indication: HYPERSENSITIVITY
     Dosage: 4 DF, QD
     Route: 055
     Dates: start: 2015
  7. XOLAIR [Suspect]
     Active Substance: OMALIZUMAB
     Dosage: 375 MG, EVERY 4 WEEKS
     Route: 058
     Dates: start: 20170323
  8. ZENHALE [Concomitant]
     Active Substance: FORMOTEROL FUMARATE\MOMETASONE FUROATE
     Indication: ASTHMA
     Dosage: 2 DF, BID
     Route: 055
  9. VORICONAZOLE. [Suspect]
     Active Substance: VORICONAZOLE
     Indication: BRONCHOPULMONARY ASPERGILLOSIS ALLERGIC
     Dosage: FOR 1 MONTH
     Route: 065
  10. PREDNISONE. [Suspect]
     Active Substance: PREDNISONE
     Indication: ASTHMA
     Dosage: 10 MG, QD
     Route: 065
  11. PREDNISONE. [Suspect]
     Active Substance: PREDNISONE
     Indication: BRONCHOPULMONARY ASPERGILLOSIS ALLERGIC
     Dosage: BID
     Route: 065
     Dates: start: 20151026
  12. SPIRIVA [Concomitant]
     Active Substance: TIOTROPIUM BROMIDE MONOHYDRATE
     Dosage: 1 DF, QD
     Route: 055
     Dates: start: 2007
  13. XOLAIR [Suspect]
     Active Substance: OMALIZUMAB
     Dosage: 375 MG, BIW
     Route: 058
  14. ADVAIR HFA [Concomitant]
     Active Substance: FLUTICASONE PROPIONATE\SALMETEROL XINAFOATE
     Indication: PRODUCT USED FOR UNKNOWN INDICATION
     Route: 065
  15. HYDROCHLOROTHIAZIDE. [Concomitant]
     Active Substance: HYDROCHLOROTHIAZIDE
     Indication: PRODUCT USED FOR UNKNOWN INDICATION
     Route: 065
  16. VALSARTAN. [Suspect]
     Active Substance: VALSARTAN
     Indication: HYPERTENSION
     Dosage: 12.5 MG, QD
     Route: 048
     Dates: start: 2014
  17. SPIRIVA [Concomitant]
     Active Substance: TIOTROPIUM BROMIDE MONOHYDRATE
     Indication: ASTHMA
     Dosage: QOD
     Route: 065
  18. VENTOLIN [Concomitant]
     Active Substance: ALBUTEROL SULFATE
     Indication: ASTHMA
     Dosage: 2 DF, PRN
     Route: 055
     Dates: start: 2007

REACTIONS (31)
  - Sputum discoloured [Unknown]
  - Forced vital capacity decreased [Unknown]
  - Forced expiratory volume decreased [Unknown]
  - Bronchitis [Unknown]
  - Cataract [Unknown]
  - Functional residual capacity increased [Unknown]
  - Bronchial secretion retention [Unknown]
  - Visual impairment [Unknown]
  - Inappropriate schedule of drug administration [Unknown]
  - Anxiety [Unknown]
  - Compression fracture [Unknown]
  - Back pain [Unknown]
  - Blood pressure systolic increased [Unknown]
  - Bronchopulmonary aspergillosis allergic [Unknown]
  - Malaise [Unknown]
  - Asthma [Unknown]
  - Chest discomfort [Unknown]
  - Obstructive airways disorder [Unknown]
  - Insomnia [Unknown]
  - Dyspnoea [Unknown]
  - Productive cough [Unknown]
  - Eye injury [Unknown]
  - Heart rate increased [Unknown]
  - Wheezing [Unknown]
  - Respiratory disorder [Unknown]
  - Sputum increased [Unknown]
  - Allergy to animal [Unknown]
  - Muscle atrophy [Unknown]
  - Nervousness [Unknown]
  - Cough [Unknown]
  - Weight increased [Unknown]

NARRATIVE: CASE EVENT DATE: 20150921
